FAERS Safety Report 9395078 (Version 2)
Quarter: 2013Q3

REPORT INFORMATION
  Report Type: Spontaneous
  Country: DE (occurrence: SE)
  Receive Date: 20130711
  Receipt Date: 20130807
  Transmission Date: 20140515
  Serious: Yes (Life-Threatening, Hospitalization)
  Sender: FDA-Public Use
  Company Number: SE-FRI-1000046517

PATIENT
  Age: 58 Year
  Sex: Male

DRUGS (9)
  1. MEMANTINE [Suspect]
     Route: 048
     Dates: start: 20130404, end: 20130421
  2. TRIATEC [Concomitant]
  3. OMEPRAZOL [Concomitant]
  4. METFORMIN [Concomitant]
  5. METOPROLOL [Concomitant]
  6. REQUIP [Concomitant]
  7. GLIBENKLAMID [Concomitant]
  8. SALURES [Concomitant]
  9. MADOPARK [Concomitant]

REACTIONS (3)
  - Hepatic failure [Not Recovered/Not Resolved]
  - Jaundice [Not Recovered/Not Resolved]
  - Pruritus [Not Recovered/Not Resolved]
